FAERS Safety Report 8149765 (Version 3)
Quarter: 2014Q3

REPORT INFORMATION
  Report Type: Report from Study
  Country: US (occurrence: US)
  Receive Date: 20110922
  Receipt Date: 20140828
  Transmission Date: 20150326
  Serious: Yes (Other)
  Sender: FDA-Public Use
  Company Number: US-ASTRAZENECA-2010SE60154

PATIENT
  Age: 48 Year
  Sex: Female
  Weight: 55.8 kg

DRUGS (32)
  1. SEROQUEL XR [Suspect]
     Active Substance: QUETIAPINE FUMARATE
     Indication: DEPRESSION
     Dosage: HALF THE DOSE DAILY
     Route: 048
     Dates: start: 2010
  2. SEROQUEL XR [Suspect]
     Active Substance: QUETIAPINE FUMARATE
     Indication: ANXIETY
     Dosage: HALF THE DOSE DAILY
     Route: 048
     Dates: start: 2010
  3. SEROQUEL XR [Suspect]
     Active Substance: QUETIAPINE FUMARATE
     Indication: ANXIETY
     Route: 048
     Dates: start: 2008
  4. SEROQUEL XR [Suspect]
     Active Substance: QUETIAPINE FUMARATE
     Indication: THINKING ABNORMAL
     Route: 048
  5. SEROQUEL XR [Suspect]
     Active Substance: QUETIAPINE FUMARATE
     Indication: DEPRESSION
     Route: 048
     Dates: start: 2008, end: 20130327
  6. SEROQUEL XR [Suspect]
     Active Substance: QUETIAPINE FUMARATE
     Indication: PANIC ATTACK
     Dosage: HALF THE DOSE DAILY
     Route: 048
     Dates: start: 2010
  7. SEROQUEL XR [Suspect]
     Active Substance: QUETIAPINE FUMARATE
     Indication: ANXIETY
     Route: 048
     Dates: start: 2008, end: 20130327
  8. SEROQUEL XR [Suspect]
     Active Substance: QUETIAPINE FUMARATE
     Indication: BIPOLAR DISORDER
     Dosage: HALF THE DOSE DAILY
     Route: 048
     Dates: start: 2010
  9. SEROQUEL XR [Suspect]
     Active Substance: QUETIAPINE FUMARATE
     Indication: THINKING ABNORMAL
     Route: 048
     Dates: start: 2008
  10. SEROQUEL XR [Suspect]
     Active Substance: QUETIAPINE FUMARATE
     Indication: PANIC ATTACK
     Route: 048
  11. XANAX [Concomitant]
     Active Substance: ALPRAZOLAM
     Indication: SLEEP DISORDER
     Route: 048
     Dates: start: 2000, end: 2013
  12. XANAX [Concomitant]
     Active Substance: ALPRAZOLAM
     Indication: ANXIETY
     Route: 048
     Dates: start: 2000, end: 2013
  13. SEROQUEL XR [Suspect]
     Active Substance: QUETIAPINE FUMARATE
     Indication: BIPOLAR DISORDER
     Route: 048
     Dates: start: 2008
  14. SEROQUEL XR [Suspect]
     Active Substance: QUETIAPINE FUMARATE
     Indication: BIPOLAR DISORDER
     Route: 048
     Dates: start: 201405
  15. SEROQUEL XR [Suspect]
     Active Substance: QUETIAPINE FUMARATE
     Indication: DEPRESSION
     Route: 048
     Dates: start: 201405
  16. XANAX [Concomitant]
     Active Substance: ALPRAZOLAM
     Indication: ANXIETY
     Route: 048
     Dates: start: 2013
  17. SEROQUEL XR [Suspect]
     Active Substance: QUETIAPINE FUMARATE
     Indication: BIPOLAR DISORDER
     Route: 048
     Dates: start: 2008, end: 20130327
  18. SEROQUEL XR [Suspect]
     Active Substance: QUETIAPINE FUMARATE
     Indication: THINKING ABNORMAL
     Route: 048
     Dates: start: 2008, end: 20130327
  19. SEROQUEL XR [Suspect]
     Active Substance: QUETIAPINE FUMARATE
     Indication: DEPRESSION
     Route: 048
     Dates: start: 2008
  20. SEROQUEL XR [Suspect]
     Active Substance: QUETIAPINE FUMARATE
     Indication: ANXIETY
     Route: 048
     Dates: start: 201405
  21. SEROQUEL XR [Suspect]
     Active Substance: QUETIAPINE FUMARATE
     Indication: THINKING ABNORMAL
     Route: 048
     Dates: start: 201405
  22. SEROQUEL XR [Suspect]
     Active Substance: QUETIAPINE FUMARATE
     Indication: BIPOLAR DISORDER
     Route: 048
  23. XANAX [Concomitant]
     Active Substance: ALPRAZOLAM
     Indication: PANIC DISORDER
     Route: 048
     Dates: start: 2000, end: 2013
  24. SEROQUEL XR [Suspect]
     Active Substance: QUETIAPINE FUMARATE
     Indication: THINKING ABNORMAL
     Dosage: HALF THE DOSE DAILY
     Route: 048
     Dates: start: 2010
  25. SEROQUEL XR [Suspect]
     Active Substance: QUETIAPINE FUMARATE
     Indication: PANIC ATTACK
     Route: 048
     Dates: start: 201405
  26. SEROQUEL XR [Suspect]
     Active Substance: QUETIAPINE FUMARATE
     Indication: ANXIETY
     Route: 048
  27. XANAX [Concomitant]
     Active Substance: ALPRAZOLAM
     Indication: SLEEP DISORDER
     Route: 048
     Dates: start: 2013
  28. BABY ASPIRIN [Concomitant]
     Active Substance: ASPIRIN
     Indication: CARDIAC DISORDER
     Route: 048
     Dates: start: 2013
  29. SEROQUEL XR [Suspect]
     Active Substance: QUETIAPINE FUMARATE
     Indication: PANIC ATTACK
     Route: 048
     Dates: start: 2008, end: 20130327
  30. SEROQUEL XR [Suspect]
     Active Substance: QUETIAPINE FUMARATE
     Indication: PANIC ATTACK
     Route: 048
     Dates: start: 2008
  31. SEROQUEL XR [Suspect]
     Active Substance: QUETIAPINE FUMARATE
     Indication: DEPRESSION
     Route: 048
  32. XANAX [Concomitant]
     Active Substance: ALPRAZOLAM
     Indication: PANIC DISORDER
     Route: 048
     Dates: start: 2013

REACTIONS (25)
  - Cardiac disorder [Unknown]
  - Intentional product misuse [Unknown]
  - Hypertension [Unknown]
  - Nervous system disorder [Unknown]
  - Mental impairment [Unknown]
  - Confusional state [Unknown]
  - Depression [Unknown]
  - Intestinal perforation [Unknown]
  - Blood cholesterol increased [Recovered/Resolved]
  - Abnormal dreams [Unknown]
  - Drug dose omission [Not Recovered/Not Resolved]
  - Palpitations [Unknown]
  - Arrhythmia [None]
  - General physical condition abnormal [Recovered/Resolved]
  - Weight increased [Unknown]
  - Dysarthria [Recovered/Resolved]
  - Dizziness [Recovered/Resolved]
  - Hypoaesthesia [Unknown]
  - Syncope [Recovered/Resolved]
  - Weight decreased [Unknown]
  - Anxiety [Unknown]
  - Syncope [Unknown]
  - Diverticulitis [Unknown]
  - Sleep disorder [Recovered/Resolved]
  - Insomnia [Unknown]

NARRATIVE: CASE EVENT DATE: 2008
